FAERS Safety Report 5480754-6 (Version None)
Quarter: 2007Q3

REPORT INFORMATION
  Report Type: 
  Country: None (occurrence: None)
  Receive Date: 20070913
  Receipt Date: 20070510
  Transmission Date: 20080115
  Serious: Yes (Hospitalization)
  Sender: FDA-Public Use
  Company Number: PHEH2007US07301

PATIENT
  Age: 70 Year
  Sex: Female

DRUGS (1)
  1. DIOVAN [Suspect]
     Indication: HYPERTENSION
     Dosage: 80 MG, QD, ORAL; 160 MG, QD, ORAL
     Route: 048
     Dates: end: 20070401

REACTIONS (3)
  - ANGIOEDEMA [None]
  - PHARYNGEAL OEDEMA [None]
  - SWOLLEN TONGUE [None]
